FAERS Safety Report 6928754-0 (Version None)
Quarter: 2010Q3

REPORT INFORMATION
  Report Type: 
  Country: None (occurrence: None)
  Receive Date: 20100817
  Receipt Date: 20100812
  Transmission Date: 20110219
  Serious: Yes (Other)
  Sender: FDA-Public Use
  Company Number: US-ROXANE LABORATORIES, INC.-2010-DE-04408GD

PATIENT
  Age: 52 Year

DRUGS (2)
  1. ORAMORPH SR [Suspect]
  2. ATIVAN [Suspect]

REACTIONS (4)
  - OXYGEN SATURATION DECREASED [None]
  - RESPIRATORY DEPRESSION [None]
  - SEDATION [None]
  - UNRESPONSIVE TO STIMULI [None]
